FAERS Safety Report 4553627-0 (Version None)
Quarter: 2004Q4

REPORT INFORMATION
  Report Type: 
  Country: None (occurrence: None)
  Receive Date: 20041227
  Receipt Date: 20041018
  Transmission Date: 20050328
  Serious: No
  Sender: FDA-Public Use
  Company Number: 04P-163-0277871-00

PATIENT
  Age: 77 Year
  Sex: Female
  Weight: 55.7924 kg

DRUGS (14)
  1. HUMIRA [Suspect]
     Indication: RHEUMATOID ARTHRITIS
     Dosage: 40 MG, 1 IN 2 WK, SUBCUTANEOUS
     Route: 058
     Dates: start: 20040717, end: 20040925
  2. POTASSIUM [Concomitant]
  3. OXYBUTYNIN HYDROCHLORIDE [Concomitant]
  4. LORATADINE [Concomitant]
  5. ICAPS [Concomitant]
  6. GELATIN [Concomitant]
  7. ASCORBIC ACID [Concomitant]
  8. PREDNISONE [Concomitant]
  9. METHOTREXATE SODIUM [Concomitant]
  10. FOLIC ACID [Concomitant]
  11. AMLODIPINE BESYLATE [Concomitant]
  12. HYDROCODONE [Concomitant]
  13. ESOMEPRAZOLE [Concomitant]
  14. CALCIUM CARBONATE [Concomitant]

REACTIONS (2)
  - CONTUSION [None]
  - DRY MOUTH [None]
